FAERS Safety Report 4557168-6 (Version None)
Quarter: 2005Q1

REPORT INFORMATION
  Report Type: 
  Country: None (occurrence: None)
  Receive Date: 20050120
  Receipt Date: 20041125
  Transmission Date: 20050727
  Serious: Yes (Other)
  Sender: FDA-Public Use
  Company Number: US-GLAXOSMITHKLINE-A0535300A

PATIENT
  Age: 26 Year
  Sex: Female

DRUGS (1)
  1. BC HEADACHE POWDER [Suspect]
     Indication: DRUG USE FOR UNKNOWN INDICATION
     Dosage: 8PACK PER DAY
     Route: 048

REACTIONS (18)
  - CONFUSIONAL STATE [None]
  - CRYING [None]
  - DEPENDENCE [None]
  - DRUG ABUSER [None]
  - DRUG WITHDRAWAL SYNDROME [None]
  - FEELING ABNORMAL [None]
  - GASTRIC DISORDER [None]
  - GASTRIC ULCER [None]
  - HAEMORRHAGE [None]
  - HEADACHE [None]
  - INSOMNIA [None]
  - INTENTIONAL MISUSE [None]
  - IRRITABILITY [None]
  - OVERDOSE [None]
  - PSYCHOMOTOR HYPERACTIVITY [None]
  - SLEEP APNOEA SYNDROME [None]
  - TINNITUS [None]
  - TREMOR [None]
